FAERS Safety Report 7036387-3 (Version None)
Quarter: 2010Q4

REPORT INFORMATION
  Report Type: 
  Country: None (occurrence: None)
  Receive Date: 20101008
  Receipt Date: 20101005
  Transmission Date: 20110411
  Serious: Yes (Death, Hospitalization)
  Sender: FDA-Public Use
  Company Number: US-GILEAD-2010-0032422

PATIENT
  Age: 46 Year
  Sex: Male

DRUGS (9)
  1. TRUVADA [Suspect]
     Indication: HIV INFECTION
  2. TRUVADA [Suspect]
  3. DARUNAVIR [Concomitant]
     Indication: HIV INFECTION
  4. DARUNAVIR [Concomitant]
  5. NORVIR [Concomitant]
     Indication: HIV INFECTION
  6. NORVIR [Concomitant]
  7. GENTAMICIN [Concomitant]
  8. VALGANCICLOVIR HCL [Concomitant]
  9. BETA LACTAM [Concomitant]

REACTIONS (4)
  - ANAEMIA [None]
  - BLOOD CREATININE INCREASED [None]
  - HYPERTENSION [None]
  - OVERDOSE [None]
